FAERS Safety Report 19271639 (Version 2)
Quarter: 2021Q2

REPORT INFORMATION
  Report Type: Spontaneous
  Country: DE (occurrence: DE)
  Receive Date: 20210519
  Receipt Date: 20210529
  Transmission Date: 20210717
  Serious: Yes (Other)
  Sender: FDA-Public Use
  Company Number: DE-AUROBINDO-AUR-APL-2021-019754

PATIENT
  Sex: Female

DRUGS (3)
  1. THYRONAJOD [Concomitant]
     Active Substance: LEVOTHYROXINE SODIUM\POTASSIUM IODIDE
     Indication: PRODUCT USED FOR UNKNOWN INDICATION
     Dosage: 1 DOSAGE FORM, ONCE A DAY(1 TABLET IN THE MORNING ON AN EMPTY STOMACH FOR ABOUT 40 YEARS)
     Route: 048
  2. FOSTER [Concomitant]
     Active Substance: BECLOMETHASONE\FORMOTEROL
     Indication: ASTHMA
     Dosage: 2 DOSAGE FORM, ONCE A DAY(ONE STROKE IN THE MORNING AND IN THE EVENING)
     Route: 055
  3. EZETIMIBE TABLETS [Suspect]
     Active Substance: EZETIMIBE
     Indication: BLOOD CHOLESTEROL INCREASED
     Dosage: 1 DOSAGE FORM, ONCE A DAY (JEDEN ABEND 1 TABLETTE)
     Route: 065
     Dates: start: 2020

REACTIONS (6)
  - Vision blurred [Recovered/Resolved]
  - Hypotonia [Recovered/Resolved]
  - Gait disturbance [Recovering/Resolving]
  - Bursitis [Recovered/Resolved]
  - Muscle rupture [Recovered/Resolved]
  - Fatigue [Recovered/Resolved]

NARRATIVE: CASE EVENT DATE: 2020
